FAERS Safety Report 18394510 (Version 2)
Quarter: 2021Q1

REPORT INFORMATION
  Report Type: Spontaneous
  Country: CN (occurrence: CN)
  Receive Date: 20201016
  Receipt Date: 20210111
  Transmission Date: 20210419
  Serious: No
  Sender: FDA-Public Use
  Company Number: CN-ALLERGAN-2037983US

PATIENT
  Age: 70 Year
  Sex: Male

DRUGS (1)
  1. OZURDEX [Suspect]
     Active Substance: DEXAMETHASONE
     Indication: MACULAR OEDEMA
     Dosage: 0.7 MG, SINGLE
     Route: 031
     Dates: start: 20200928, end: 20200928

REACTIONS (3)
  - Injection site pain [Recovered/Resolved]
  - Complication of device insertion [Unknown]
  - Product complaint [Unknown]

NARRATIVE: CASE EVENT DATE: 20200928
